FAERS Safety Report 7490649-4 (Version None)
Quarter: 2011Q2

REPORT INFORMATION
  Report Type: 
  Country: None (occurrence: None)
  Receive Date: 20110517
  Receipt Date: 20110517
  Transmission Date: 20111010
  Serious: Yes (Life-Threatening)
  Sender: FDA-Public Use
  Company Number: None

PATIENT
  Age: 49 Year
  Sex: Male
  Weight: 108.8633 kg

DRUGS (1)
  1. MELOXICAM [Suspect]
     Indication: INFLAMMATION
     Dosage: 1 X2 DAILY PO  1 PILL ONLY
     Route: 048
     Dates: start: 20110509, end: 20110509

REACTIONS (6)
  - CHEST PAIN [None]
  - FEELING COLD [None]
  - HYPERHIDROSIS [None]
  - CARDIAC DISORDER [None]
  - FEELING HOT [None]
  - VISION BLURRED [None]
